FAERS Safety Report 15312800 (Version 1)
Quarter: 2018Q3

REPORT INFORMATION
  Report Type: Spontaneous
  Country: EG (occurrence: EG)
  Receive Date: 20180823
  Receipt Date: 20180823
  Transmission Date: 20181010
  Serious: Yes (Other)
  Sender: FDA-Public Use
  Company Number: EG-009507513-1808EGY006484

PATIENT
  Age: 49 Year
  Sex: Female

DRUGS (3)
  1. RIBAVIRIN. [Suspect]
     Active Substance: RIBAVIRIN
     Indication: HEPATITIS C
     Dosage: 400 MG, 3 PER 1 DAY(S)
     Route: 048
     Dates: start: 2016, end: 2016
  2. PEGINTERFERON ALFA?2B [Suspect]
     Active Substance: PEGINTERFERON ALFA-2B
     Indication: HEPATITIS C
     Dosage: 150 IU (150MCG/0.5ML), 1 PER 1 WEEK(S)
     Route: 058
     Dates: start: 2016, end: 2016
  3. SOFOSBUVIR [Suspect]
     Active Substance: SOFOSBUVIR
     Indication: HEPATITIS C
     Dosage: 400 MG, 1 PER 1 DAY(S)
     Route: 048
     Dates: start: 2016, end: 2016

REACTIONS (1)
  - Hepatitis C [Unknown]

NARRATIVE: CASE EVENT DATE: 2016
